FAERS Safety Report 5026121-0 (Version None)
Quarter: 2006Q2

REPORT INFORMATION
  Report Type: 
  Country: None (occurrence: None)
  Receive Date: 20060614
  Receipt Date: 20060530
  Transmission Date: 20061013
  Serious: Yes (Hospitalization, Disabling, Other)
  Sender: FDA-Public Use
  Company Number: US-AMGEN-US181685

PATIENT
  Sex: Female
  Weight: 92.2 kg

DRUGS (24)
  1. ENBREL [Suspect]
     Indication: RHEUMATOID ARTHRITIS
     Route: 065
     Dates: start: 20000201, end: 20020101
  2. REMICADE [Suspect]
     Indication: RHEUMATOID ARTHRITIS
     Route: 042
     Dates: end: 20021212
  3. MIRAPEX [Concomitant]
  4. MIRAPEX [Concomitant]
  5. ALBUTEROL [Concomitant]
  6. ALBUTEROL [Concomitant]
  7. OXYCODONE AND ACETAMINOPHEN [Concomitant]
  8. CLONAZEPAM [Concomitant]
  9. IBUPROFEN [Concomitant]
  10. PREDNISONE [Concomitant]
  11. PHENAZOPYRIDINE [Concomitant]
  12. PRILOSEC [Concomitant]
  13. CIPROFLOXACIN HYDROCHLORIDE [Concomitant]
  14. SULFAMETHOXAZOLE [Concomitant]
  15. MACROBID [Concomitant]
  16. ZYBAN [Concomitant]
  17. COMBIVENT [Concomitant]
  18. CLAVULIN [Concomitant]
  19. FUROSEMIDE [Concomitant]
  20. NAPROXEN [Concomitant]
  21. DOXYCYCLINE [Concomitant]
  22. CELEBREX [Concomitant]
  23. INH [Concomitant]
  24. PLAQUENIL [Concomitant]

REACTIONS (19)
  - ANAEMIA [None]
  - CHRONIC INFLAMMATORY DEMYELINATING POLYRADICULONEUROPATHY [None]
  - CONDITION AGGRAVATED [None]
  - DEMYELINATING POLYNEUROPATHY [None]
  - DISEASE RECURRENCE [None]
  - ESCHERICHIA INFECTION [None]
  - GUILLAIN-BARRE SYNDROME [None]
  - HAEMATURIA [None]
  - HEMIPARESIS [None]
  - HYPOTONIC URINARY BLADDER [None]
  - MYALGIA [None]
  - NEUROGENIC BLADDER [None]
  - PAIN IN EXTREMITY [None]
  - PARAESTHESIA [None]
  - PYELONEPHRITIS [None]
  - SENSORY DISTURBANCE [None]
  - THORACIC OUTLET SYNDROME [None]
  - URINARY RETENTION [None]
  - URINARY TRACT INFECTION [None]
